FAERS Safety Report 9319780 (Version 2)
Quarter: 2013Q3

REPORT INFORMATION
  Report Type: Report from Study
  Country: JP (occurrence: JP)
  Receive Date: 20130530
  Receipt Date: 20130703
  Transmission Date: 20140515
  Serious: Yes (Death)
  Sender: FDA-Public Use
  Company Number: JP-GLAXOSMITHKLINE-B0894266A

PATIENT
  Age: 71 Year
  Sex: Female
  Weight: 46 kg

DRUGS (10)
  1. REVOLADE [Suspect]
     Indication: IMMUNE THROMBOCYTOPENIC PURPURA
     Dosage: 12.5MG PER DAY
     Route: 048
     Dates: start: 20130502, end: 20130518
  2. LENDORMIN D [Concomitant]
     Route: 048
     Dates: start: 20130502
  3. DEPAS [Concomitant]
     Route: 048
     Dates: start: 20130510
  4. CONIEL [Concomitant]
     Route: 048
     Dates: start: 20130511
  5. ANHIBA [Concomitant]
     Route: 054
     Dates: start: 20130518, end: 20130518
  6. PERDIPINE [Concomitant]
     Route: 042
  7. ADONA (AC-17) [Concomitant]
     Dates: end: 20130503
  8. PRIMPERAN [Concomitant]
     Dates: start: 20130502, end: 20130502
  9. PRIMPERAN [Concomitant]
     Dates: start: 20130517, end: 20130517
  10. CEFTRIAXONE SODIUM [Concomitant]
     Dates: start: 20130518

REACTIONS (2)
  - Cerebral haemorrhage [Fatal]
  - Upper gastrointestinal haemorrhage [Recovering/Resolving]
